FAERS Safety Report 6364504-7 (Version None)
Quarter: 2009Q3

REPORT INFORMATION
  Report Type: 
  Country: None (occurrence: None)
  Receive Date: 20090919
  Receipt Date: 20090722
  Transmission Date: 20100115
  Serious: No
  Sender: FDA-Public Use
  Company Number: US-ABBOTT-09P-163-0587327-00

PATIENT
  Sex: Female
  Weight: 64.922 kg

DRUGS (2)
  1. HUMIRA [Suspect]
     Indication: CROHN'S DISEASE
     Dates: start: 20070401, end: 20090201
  2. HUMIRA [Suspect]
     Dates: start: 20090201

REACTIONS (4)
  - CROHN'S DISEASE [None]
  - HALLUCINATION, VISUAL [None]
  - JOINT SPRAIN [None]
  - PHOTOPSIA [None]
